FAERS Safety Report 9953472 (Version 2)
Quarter: 2014Q1

REPORT INFORMATION
  Report Type: Report from Study
  Country: US (occurrence: US)
  Receive Date: 20140304
  Receipt Date: 20140304
  Transmission Date: 20141002
  Serious: No
  Sender: FDA-Public Use
  Company Number: US-ABBVIE-12P-163-0976449-00

PATIENT
  Age: 32 Year
  Sex: Female

DRUGS (6)
  1. HUMIRA [Suspect]
     Indication: CROHN^S DISEASE
     Dates: start: 20120818, end: 20120818
  2. HUMIRA [Suspect]
     Dates: start: 20120819, end: 20120819
  3. HUMIRA [Suspect]
  4. PROTONIX [Concomitant]
     Indication: PRODUCT USED FOR UNKNOWN INDICATION
     Dosage: 20MG DAILY
  5. ZOLOFT [Concomitant]
     Indication: ANXIETY
     Dosage: AT BEDTIME
     Dates: start: 201304
  6. ZOLOFT [Concomitant]
     Indication: GASTROINTESTINAL DISORDER

REACTIONS (3)
  - Injection site pain [Recovered/Resolved]
  - Injection site pain [Recovered/Resolved]
  - Injection site reaction [Not Recovered/Not Resolved]
